FAERS Safety Report 10082173 (Version 1)
Quarter: 2014Q2

REPORT INFORMATION
  Report Type: Spontaneous
  Country: US (occurrence: US)
  Receive Date: 20140416
  Receipt Date: 20140416
  Transmission Date: 20141212
  Serious: No
  Sender: FDA-Public Use
  Company Number: US-PFIZER INC-2014103797

PATIENT
  Age: 16 Year
  Sex: Male

DRUGS (2)
  1. ADVIL COLD AND SINUS [Suspect]
     Indication: SINUS DISORDER
     Dosage: UNK
  2. DIPHENHYDRAMINE [Interacting]
     Indication: INSOMNIA
     Dosage: UNK
     Dates: start: 20140409

REACTIONS (3)
  - Drug interaction [Unknown]
  - Headache [Unknown]
  - Eye pain [Unknown]
